FAERS Safety Report 4893523-2 (Version None)
Quarter: 2006Q1

REPORT INFORMATION
  Report Type: 
  Country: None (occurrence: None)
  Receive Date: 20060127
  Receipt Date: 20060105
  Transmission Date: 20060701
  Serious: Yes (Hospitalization)
  Sender: FDA-Public Use
  Company Number: US-JNJFOC-20060104937

PATIENT
  Age: 80 Year
  Sex: Female

DRUGS (7)
  1. IBUPROFEN [Suspect]
     Indication: OSTEOARTHRITIS
     Route: 048
  2. DAYPRO [Suspect]
     Indication: OSTEOARTHRITIS
     Route: 048
  3. OXYTROL [Suspect]
  4. OXYTROL [Suspect]
     Indication: URINARY INCONTINENCE
  5. DITROPAN XL [Concomitant]
     Indication: URINARY INCONTINENCE
  6. ROBINUL [Concomitant]
  7. PROCHLORPERAZINE [Concomitant]

REACTIONS (3)
  - COLITIS ULCERATIVE [None]
  - HAEMATOCHEZIA [None]
  - IRRITABLE BOWEL SYNDROME [None]
